FAERS Safety Report 9811734 (Version 2)
Quarter: 2014Q1

REPORT INFORMATION
  Report Type: Spontaneous
  Country: US (occurrence: US)
  Receive Date: 20140110
  Receipt Date: 20140110
  Transmission Date: 20141002
  Serious: Yes (Hospitalization)
  Sender: FDA-Public Use
  Company Number: US-SANOFI-AVENTIS-2013SA047996

PATIENT
  Age: 61 Year
  Sex: Female

DRUGS (28)
  1. PLAVIX [Suspect]
     Indication: PRODUCT USED FOR UNKNOWN INDICATION
     Route: 065
     Dates: start: 20110818
  2. ASPIRIN [Suspect]
     Indication: PRODUCT USED FOR UNKNOWN INDICATION
     Route: 065
     Dates: start: 20110818, end: 20110830
  3. ASPIRIN [Suspect]
     Indication: PRODUCT USED FOR UNKNOWN INDICATION
     Route: 065
     Dates: start: 201109
  4. CRESTOR [Concomitant]
     Route: 065
     Dates: start: 20111001, end: 20120430
  5. CRESTOR [Concomitant]
     Route: 065
     Dates: start: 20120501
  6. INSULIN [Concomitant]
     Dosage: DOSE:24 UNIT(S)
     Dates: start: 20111102, end: 20111218
  7. INSULIN [Concomitant]
     Dosage: DOSE:27 UNIT(S)
     Dates: start: 20111219, end: 20120109
  8. INSULIN [Concomitant]
     Dosage: DOSE:30 UNIT(S)
     Dates: start: 20120110, end: 20120124
  9. INSULIN [Concomitant]
     Dosage: LANTUS? DOSE:35 UNIT(S)
     Dates: start: 20120125, end: 20120704
  10. INSULIN [Concomitant]
     Dosage: DOSE:17 UNIT(S)
     Route: 065
     Dates: start: 2007, end: 20111014
  11. INSULIN [Concomitant]
     Dosage: DOSE:20 UNIT(S)
     Route: 065
     Dates: start: 20111014, end: 20111101
  12. INSULIN [Concomitant]
     Dosage: DOSE:30 UNIT(S)
     Route: 065
     Dates: start: 20120705, end: 201211
  13. INSULIN [Concomitant]
     Dosage: DOSE:35 UNIT(S)
     Route: 065
     Dates: start: 20120329, end: 20120704
  14. INSULIN [Concomitant]
     Dosage: 30 DF DAILY AND 32 DF DAILY
     Route: 065
     Dates: start: 20120124, end: 20120329
  15. INSULIN [Concomitant]
     Dosage: DOSE:40 UNIT(S)
     Route: 065
     Dates: start: 201211
  16. ADVAIR [Concomitant]
     Dosage: 100/50 MCG AS NEEDED
     Dates: start: 2009, end: 20130124
  17. HUMALOG [Concomitant]
     Route: 065
     Dates: start: 20120705, end: 201211
  18. HUMALOG [Concomitant]
     Route: 065
     Dates: start: 201211
  19. NIFEDIPINE [Concomitant]
     Route: 065
     Dates: start: 2010, end: 20110818
  20. TELMISARTAN [Concomitant]
     Route: 065
     Dates: start: 2010, end: 20110830
  21. METFORMIN [Concomitant]
     Route: 065
     Dates: start: 2010, end: 201211
  22. METFORMIN [Concomitant]
     Route: 065
     Dates: start: 201211
  23. HYDROCHLOROTHIAZIDE [Concomitant]
     Route: 065
     Dates: start: 2010, end: 20110830
  24. HYDROCHLOROTHIAZIDE [Concomitant]
     Route: 065
     Dates: start: 20110818, end: 20120927
  25. HYDROCHLOROTHIAZIDE [Concomitant]
     Route: 065
     Dates: start: 20120901
  26. METOPROLOL [Concomitant]
     Route: 065
     Dates: start: 20110818, end: 20111103
  27. RAMIPRIL [Concomitant]
     Route: 065
     Dates: start: 20130108
  28. DOCUSATE SODIUM [Concomitant]
     Route: 065
     Dates: start: 20130415

REACTIONS (1)
  - Diverticulum intestinal haemorrhagic [Recovered/Resolved]
